FAERS Safety Report 21199820 (Version 1)
Quarter: 2022Q3

REPORT INFORMATION
  Report Type: Spontaneous
  Country: IN (occurrence: IN)
  Receive Date: 20220811
  Receipt Date: 20220811
  Transmission Date: 20221027
  Serious: Yes (Hospitalization)
  Sender: FDA-Public Use
  Company Number: IN-STRIDES ARCOLAB LIMITED-2022SP010222

PATIENT
  Age: 38 Year
  Sex: Male

DRUGS (1)
  1. PREDNISOLONE [Suspect]
     Active Substance: PREDNISOLONE
     Indication: Arthralgia
     Dosage: 60 MILLIGRAM; PER DAY
     Route: 048

REACTIONS (9)
  - Intussusception [Unknown]
  - Abdominal lymphadenopathy [Unknown]
  - Gastritis [Unknown]
  - Duodenitis [Unknown]
  - Oedema [Unknown]
  - Gastric mucosal lesion [Unknown]
  - Strongyloidiasis [Unknown]
  - Type 2 lepra reaction [Unknown]
  - Body tinea [Unknown]
